FAERS Safety Report 23019821 (Version 1)
Quarter: 2023Q4

REPORT INFORMATION
  Report Type: Spontaneous
  Country: US (occurrence: US)
  Receive Date: 20231003
  Receipt Date: 20231003
  Transmission Date: 20240110
  Serious: Yes (Other)
  Sender: FDA-Public Use
  Company Number: US-BAYER-2023A135038

PATIENT
  Age: 90 Year
  Sex: Female

DRUGS (1)
  1. MIRALAX [Suspect]
     Active Substance: POLYETHYLENE GLYCOL 3350
     Indication: Abdominal discomfort
     Dosage: 1 CAP
     Route: 048
     Dates: start: 20230918, end: 20230920

REACTIONS (3)
  - Haematochezia [Unknown]
  - Blood pressure increased [Unknown]
  - Expired product administered [Unknown]

NARRATIVE: CASE EVENT DATE: 20230920
